FAERS Safety Report 24015998 (Version 2)
Quarter: 2024Q3

REPORT INFORMATION
  Report Type: Report from Study
  Country: JP (occurrence: JP)
  Receive Date: 20240626
  Receipt Date: 20240715
  Transmission Date: 20241016
  Serious: Yes (Death)
  Sender: SHIONOGI
  Company Number: JP-shionogi-202404686_FTR_P_1

PATIENT

DRUGS (8)
  1. FETROJA [Suspect]
     Active Substance: CEFIDEROCOL SULFATE TOSYLATE
     Indication: Bacteraemia
     Dosage: 1.5 G, 1 PER 12 HOUR
     Route: 041
     Dates: start: 20240613, end: 20240614
  2. FETROJA [Suspect]
     Active Substance: CEFIDEROCOL SULFATE TOSYLATE
     Indication: Cholangitis
  3. PREDONINE [Concomitant]
     Active Substance: PREDNISOLONE
     Dosage: 15 MG, QD
     Route: 048
     Dates: end: 20240614
  4. URSODIOL [Concomitant]
     Active Substance: URSODIOL
     Dosage: 200 MG, PRN8
     Route: 048
     Dates: end: 20240614
  5. LEVOFLOXACIN HEMIHYDRATE [Concomitant]
     Active Substance: LEVOFLOXACIN
     Indication: Bacteraemia
     Dosage: 500 MG, QD
     Route: 041
     Dates: start: 20240613, end: 20240614
  6. LEVOFLOXACIN HEMIHYDRATE [Concomitant]
     Active Substance: LEVOFLOXACIN
     Indication: Cholangitis
  7. METRONIDAZOLE [Concomitant]
     Active Substance: METRONIDAZOLE
     Indication: Bacteraemia
     Dosage: 500 MG, PRN8
     Route: 065
     Dates: start: 20240613, end: 20240614
  8. METRONIDAZOLE [Concomitant]
     Active Substance: METRONIDAZOLE
     Indication: Cholangitis

REACTIONS (2)
  - Bacteraemia [Fatal]
  - Cholangitis [Fatal]

NARRATIVE: CASE EVENT DATE: 20240614
